FAERS Safety Report 5581723-8 (Version None)
Quarter: 2008Q1

REPORT INFORMATION
  Report Type: 
  Country: None (occurrence: None)
  Receive Date: 20080104
  Receipt Date: 20080103
  Transmission Date: 20080703
  Serious: Yes (Life-Threatening)
  Sender: FDA-Public Use
  Company Number: US-ASTRAZENECA-2007UW25551

PATIENT
  Age: 8024 Day
  Sex: Female
  Weight: 84.4 kg

DRUGS (4)
  1. PULMICORT FLEXHALER [Suspect]
     Indication: ASTHMA
     Dosage: 2 INH Q12
     Route: 055
     Dates: start: 20071002, end: 20071102
  2. PRO AIR MFA [Suspect]
     Indication: ASTHMA
     Dosage: 2 PUFFS Q 4-6
     Route: 055
     Dates: start: 20071102
  3. SINGULAIR [Concomitant]
     Indication: ASTHMA
     Dosage: 1 TABLET QD
     Route: 048
  4. CLARINEX [Concomitant]
     Indication: RHINITIS ALLERGIC
     Route: 048

REACTIONS (3)
  - ANXIETY [None]
  - DYSPHONIA [None]
  - DYSPNOEA [None]
